FAERS Safety Report 20841388 (Version 2)
Quarter: 2022Q2

REPORT INFORMATION
  Report Type: Spontaneous
  Country: PL (occurrence: PL)
  Receive Date: 20220517
  Receipt Date: 20220617
  Transmission Date: 20220721
  Serious: Yes (Hospitalization, Other)
  Sender: FDA-Public Use
  Company Number: PL-JNJFOC-20220528984

PATIENT
  Age: 47 Year
  Sex: Male
  Weight: 76 kg

DRUGS (2)
  1. SIMPONI [Suspect]
     Active Substance: GOLIMUMAB
     Indication: Ankylosing spondylitis
     Route: 058
     Dates: start: 20200117, end: 20200813
  2. Olfen [Concomitant]
     Indication: Ankylosing spondylitis

REACTIONS (10)
  - Ankylosing spondylitis [Unknown]
  - Leukopenia [Unknown]
  - Loss of consciousness [Recovered/Resolved]
  - Anxiety [Recovered/Resolved]
  - Sleep disorder [Recovered/Resolved]
  - Palpitations [Recovered/Resolved]
  - Headache [Recovered/Resolved]
  - Disturbance in attention [Recovered/Resolved]
  - Staphylococcal infection [Unknown]
  - Lymphocytosis [Unknown]

NARRATIVE: CASE EVENT DATE: 20200101
